FAERS Safety Report 21125476 (Version 1)
Quarter: 2022Q3

REPORT INFORMATION
  Report Type: Spontaneous
  Country: CN (occurrence: CN)
  Receive Date: 20220725
  Receipt Date: 20220725
  Transmission Date: 20221026
  Serious: Yes (Other)
  Sender: FDA-Public Use
  Company Number: CN-NOVARTISPH-NVSC2022CN165754

PATIENT
  Age: 47 Year
  Sex: Male
  Weight: 48 kg

DRUGS (8)
  1. CERITINIB [Suspect]
     Active Substance: CERITINIB
     Indication: Lung adenocarcinoma
     Dosage: 450 MG, QD
     Route: 048
     Dates: start: 20220113, end: 20220705
  2. CERITINIB [Suspect]
     Active Substance: CERITINIB
     Indication: ALK gene rearrangement positive
     Dosage: 300 MG, QD
     Route: 048
  3. MAGNESIUM ISOGLYCYRRHIZINATE [Concomitant]
     Active Substance: MAGNESIUM ISOGLYCYRRHIZINATE
     Indication: Hepatic function abnormal
     Dosage: 200MG IVGTT QD
     Route: 042
  4. TAMSULOSIN [Concomitant]
     Active Substance: TAMSULOSIN
     Indication: Pollakiuria
     Dosage: 0.2 G, QD
     Route: 048
     Dates: start: 20220629
  5. TAMSULOSIN [Concomitant]
     Active Substance: TAMSULOSIN
     Indication: Micturition urgency
  6. CEFUROXIME SODIUM [Concomitant]
     Active Substance: CEFUROXIME SODIUM
     Indication: Infection
     Dosage: 1.5G IVGTT Q8H
     Route: 042
  7. DEXTROSE [Concomitant]
     Active Substance: DEXTROSE
     Indication: Hepatic function abnormal
     Dosage: 250 ML
     Route: 042
  8. GLUTATHIONE [Concomitant]
     Active Substance: GLUTATHIONE
     Indication: Hepatic function abnormal
     Dosage: 1.8 G, QD
     Route: 065

REACTIONS (1)
  - Liver injury [Recovering/Resolving]

NARRATIVE: CASE EVENT DATE: 20220705
